FAERS Safety Report 26024600 (Version 1)
Quarter: 2025Q4

REPORT INFORMATION
  Report Type: Spontaneous
  Country: GB (occurrence: GB)
  Receive Date: 20251111
  Receipt Date: 20251111
  Transmission Date: 20260118
  Serious: Yes (Other)
  Sender: ABBVIE
  Company Number: GB-ABBVIE-6537404

PATIENT
  Age: 40 Year
  Sex: Female

DRUGS (1)
  1. SKYRIZI [Suspect]
     Active Substance: RISANKIZUMAB-RZAA
     Indication: Product used for unknown indication
     Dosage: RECENT INJECTION ON 26 JUL 2025
     Route: 058

REACTIONS (3)
  - Cerebral haemorrhage [Unknown]
  - Muscular weakness [Unknown]
  - Loss of consciousness [Unknown]
